FAERS Safety Report 5450136-1 (Version None)
Quarter: 2007Q3

REPORT INFORMATION
  Report Type: 
  Country: None (occurrence: None)
  Receive Date: 20070912
  Receipt Date: 20070907
  Transmission Date: 20080115
  Serious: Yes (Hospitalization)
  Sender: FDA-Public Use
  Company Number: B0473413A

PATIENT
  Sex: Male
  Weight: 3.3 kg

DRUGS (10)
  1. PAXIL [Suspect]
     Indication: DRUG USE FOR UNKNOWN INDICATION
     Dosage: 30MG PER DAY
     Dates: start: 20030527, end: 20070525
  2. HEPARIN [Concomitant]
     Dosage: 15IU3 PER DAY
     Dates: start: 20030523, end: 20070525
  3. LENDORMIN [Concomitant]
     Dosage: .25MG PER DAY
     Dates: start: 20061120, end: 20070525
  4. DEPAS [Concomitant]
  5. FERROMIA [Concomitant]
     Dosage: 50MG PER DAY
     Dates: start: 20070320, end: 20070525
  6. LEXOTAN [Concomitant]
     Dosage: 2MG PER DAY
     Dates: start: 20030527, end: 20070525
  7. UNKNOWN MEDICATION [Concomitant]
     Dates: start: 20070525, end: 20070525
  8. ORGARAN [Concomitant]
     Dosage: 25IU3 PER DAY
     Dates: start: 20070525, end: 20070525
  9. WARFARIN SODIUM [Concomitant]
     Dosage: 2G PER DAY
     Dates: start: 20070525, end: 20070525
  10. UTEMERIN [Concomitant]
     Dosage: 20MG PER DAY
     Dates: start: 20070305, end: 20070424

REACTIONS (10)
  - ADVERSE EVENT [None]
  - AGITATION [None]
  - ANXIETY [None]
  - DRUG EXPOSURE DURING PREGNANCY [None]
  - DRUG WITHDRAWAL SYNDROME NEONATAL [None]
  - DYSPEPSIA [None]
  - IRRITABILITY [None]
  - NEONATAL ASPHYXIA [None]
  - TACHYPNOEA [None]
  - TREMOR [None]
